FAERS Safety Report 9625778 (Version 3)
Quarter: 2013Q4

REPORT INFORMATION
  Report Type: Spontaneous
  Country: RS (occurrence: RS)
  Receive Date: 20131016
  Receipt Date: 20131028
  Transmission Date: 20140711
  Serious: Yes (Death, Hospitalization, Other)
  Sender: FDA-Public Use
  Company Number: RS-ASTELLAS-2013US010547

PATIENT
  Sex: Female

DRUGS (2)
  1. TARCEVA [Suspect]
     Indication: NON-SMALL CELL LUNG CANCER
     Dosage: 150 MG, UID/QD
     Route: 065
     Dates: start: 20121012, end: 20130710
  2. TARCEVA [Suspect]
     Dosage: 100 MG, UID/QD
     Route: 065

REACTIONS (5)
  - Cardiac failure [Fatal]
  - Haemoptysis [Unknown]
  - Rash [Unknown]
  - Dyspnoea [Unknown]
  - Malignant neoplasm progression [Unknown]
